FAERS Safety Report 5161698-6 (Version None)
Quarter: 2006Q4

REPORT INFORMATION
  Report Type: 
  Country: None (occurrence: None)
  Receive Date: 20061130
  Receipt Date: 20060810
  Transmission Date: 20070319
  Serious: No
  Sender: FDA-Public Use
  Company Number: US-BRISTOL-MYERS SQUIBB COMPANY-13471354

PATIENT
  Age: 55 Year
  Sex: Female
  Weight: 81 kg

DRUGS (5)
  1. METFORMIN HCL [Suspect]
     Indication: DIABETES MELLITUS
     Route: 048
     Dates: start: 20030101, end: 20060101
  2. METFORMIN HCL [Suspect]
     Indication: DIABETES MELLITUS
     Route: 048
     Dates: start: 20060101, end: 20060601
  3. AMARYL [Concomitant]
  4. AVANDIA [Concomitant]
  5. VITAMIN CAP [Concomitant]

REACTIONS (2)
  - BRADYCARDIA [None]
  - FATIGUE [None]
